FAERS Safety Report 24992970 (Version 1)
Quarter: 2025Q1

REPORT INFORMATION
  Report Type: Spontaneous
  Country: US (occurrence: US)
  Receive Date: 20250221
  Receipt Date: 20250221
  Transmission Date: 20250408
  Serious: Yes (Other)
  Sender: ROCHE
  Company Number: US-ROCHE-10000209055

PATIENT
  Age: 52 Year
  Sex: Female

DRUGS (5)
  1. TRASTUZUMAB [Suspect]
     Active Substance: TRASTUZUMAB
     Indication: Triple negative breast cancer
     Route: 065
  2. PACLITAXEL [Concomitant]
     Active Substance: PACLITAXEL
  3. CARBOPLATIN [Concomitant]
     Active Substance: CARBOPLATIN
  4. PEMBROLIZUMAB [Concomitant]
     Active Substance: PEMBROLIZUMAB
  5. PERTUZUMAB [Concomitant]
     Active Substance: PERTUZUMAB

REACTIONS (1)
  - Acute kidney injury [Unknown]
